FAERS Safety Report 13651381 (Version 2)
Quarter: 2017Q3

REPORT INFORMATION
  Report Type: Spontaneous
  Country: TR (occurrence: TR)
  Receive Date: 20170614
  Receipt Date: 20170711
  Transmission Date: 20171127
  Serious: Yes (Death)
  Sender: FDA-Public Use
  Company Number: TR-PFIZER INC-2017254740

PATIENT
  Age: 8 Year
  Sex: Female

DRUGS (15)
  1. VANCOMYCIN /00314402/ [Concomitant]
     Active Substance: VANCOMYCIN
     Indication: FEBRILE NEUTROPENIA
     Dosage: UNK
  2. CEFEPIME [Concomitant]
     Active Substance: CEFEPIME HYDROCHLORIDE
     Indication: FEBRILE NEUTROPENIA
     Dosage: UNK
  3. VORICONAZOLE. [Suspect]
     Active Substance: VORICONAZOLE
     Indication: MUCOSAL INFLAMMATION
  4. VORICONAZOLE. [Suspect]
     Active Substance: VORICONAZOLE
     Indication: HEPATOMEGALY
  5. CASPOFUNGIN [Suspect]
     Active Substance: CASPOFUNGIN
     Indication: HEPATOMEGALY
  6. AMPHOTERICIN B. [Suspect]
     Active Substance: AMPHOTERICIN B
     Indication: HEPATOMEGALY
  7. VANCOMYCIN /00314402/ [Concomitant]
     Active Substance: VANCOMYCIN
     Indication: MUCOSAL INFLAMMATION
  8. CEFEPIME [Concomitant]
     Active Substance: CEFEPIME HYDROCHLORIDE
     Indication: HEPATOMEGALY
  9. VANCOMYCIN /00314402/ [Concomitant]
     Active Substance: VANCOMYCIN
     Indication: HEPATOMEGALY
  10. AMPHOTERICIN B. [Suspect]
     Active Substance: AMPHOTERICIN B
     Indication: FEBRILE NEUTROPENIA
     Dosage: 5 MG/KG, DAILY
  11. VORICONAZOLE. [Suspect]
     Active Substance: VORICONAZOLE
     Indication: FEBRILE NEUTROPENIA
     Dosage: UNK (STARTED ON THE EIGHTH DAY)
  12. CASPOFUNGIN [Suspect]
     Active Substance: CASPOFUNGIN
     Indication: MUCOSAL INFLAMMATION
  13. CEFEPIME [Concomitant]
     Active Substance: CEFEPIME HYDROCHLORIDE
     Indication: MUCOSAL INFLAMMATION
  14. CASPOFUNGIN [Suspect]
     Active Substance: CASPOFUNGIN
     Indication: FEBRILE NEUTROPENIA
     Dosage: UNK
  15. AMPHOTERICIN B. [Suspect]
     Active Substance: AMPHOTERICIN B
     Indication: MUCOSAL INFLAMMATION

REACTIONS (1)
  - Drug ineffective [Fatal]
